FAERS Safety Report 9363911 (Version 1)
Quarter: 2013Q2

REPORT INFORMATION
  Report Type: Spontaneous
  Country: GB (occurrence: GB)
  Receive Date: 20130624
  Receipt Date: 20130624
  Transmission Date: 20140414
  Serious: Yes (Other)
  Sender: FDA-Public Use
  Company Number: GB-PFIZER INC-2013186825

PATIENT
  Age: 64 Year
  Sex: Female
  Weight: 85.27 kg

DRUGS (7)
  1. CHAMPIX [Suspect]
     Indication: SMOKING CESSATION THERAPY
     Dosage: 0.5 MG, 1X/DAY
     Route: 048
     Dates: start: 20130512, end: 20130514
  2. CHAMPIX [Suspect]
     Dosage: 0.5 MG, 2X/DAY
     Route: 048
     Dates: start: 20130515, end: 20130518
  3. CHAMPIX [Suspect]
     Dosage: 1 MG, 2X/DAY
     Route: 048
     Dates: start: 201305, end: 20130531
  4. QVAR [Concomitant]
     Dosage: UNK
     Route: 055
  5. VENTOLIN [Concomitant]
     Dosage: UNK
     Route: 055
  6. KLIOFEM [Concomitant]
     Dosage: UNK
  7. SUMATRIPTAN [Concomitant]
     Dosage: UNK

REACTIONS (4)
  - Diarrhoea [Not Recovered/Not Resolved]
  - Flatulence [Recovering/Resolving]
  - Dyspepsia [Not Recovered/Not Resolved]
  - Gastrointestinal pain [Recovering/Resolving]
